FAERS Safety Report 11459327 (Version 2)
Quarter: 2015Q4

REPORT INFORMATION
  Report Type: Spontaneous
  Country: US (occurrence: US)
  Receive Date: 20150904
  Receipt Date: 20151210
  Transmission Date: 20160304
  Serious: No
  Sender: FDA-Public Use
  Company Number: US-JNJFOC-20150817794

PATIENT
  Age: 76 Year
  Sex: Male
  Weight: 81.65 kg

DRUGS (1)
  1. INVOKANA [Suspect]
     Active Substance: CANAGLIFLOZIN
     Indication: BLOOD GLUCOSE ABNORMAL
     Route: 048
     Dates: start: 201505

REACTIONS (12)
  - Headache [Recovering/Resolving]
  - Abdominal discomfort [Recovered/Resolved]
  - Incorrect dose administered [Unknown]
  - Genital rash [Recovered/Resolved]
  - Pollakiuria [Recovering/Resolving]
  - Asthenia [Recovering/Resolving]
  - Blood pressure decreased [Recovered/Resolved]
  - Genital disorder male [Recovered/Resolved]
  - Dizziness [Recovering/Resolving]
  - Wrong technique in product usage process [Unknown]
  - Pharyngeal disorder [Not Recovered/Not Resolved]
  - Skin odour abnormal [Recovered/Resolved]

NARRATIVE: CASE EVENT DATE: 201505
